FAERS Safety Report 7916458-7 (Version None)
Quarter: 2011Q4

REPORT INFORMATION
  Report Type: 
  Country: None (occurrence: None)
  Receive Date: 20111114
  Receipt Date: 20111028
  Transmission Date: 20120403
  Serious: Yes (Other)
  Sender: FDA-Public Use
  Company Number: FK201102482

PATIENT
  Age: 48 Year
  Sex: Female

DRUGS (1)
  1. BUPIVACAINE (MANUFACTURER UNKNOWN) (BUPIVACAINE) (BUPIVACAINE) [Suspect]
     Indication: LOCAL ANAESTHESIA
     Dosage: 28 MG

REACTIONS (6)
  - APHASIA [None]
  - TREMOR [None]
  - ANXIETY [None]
  - MUCOUS MEMBRANE DISORDER [None]
  - NERVOUS SYSTEM DISORDER [None]
  - HYPERSENSITIVITY [None]
